FAERS Safety Report 23253893 (Version 1)
Quarter: 2023Q4

REPORT INFORMATION
  Report Type: Spontaneous
  Country: US (occurrence: US)
  Receive Date: 20231202
  Receipt Date: 20231202
  Transmission Date: 20240109
  Serious: Yes (Other)
  Sender: FDA-Public Use
  Company Number: US-ENDO-CASE-0048151

PATIENT
  Sex: Male

DRUGS (5)
  1. ACETAMINOPHEN\OXYCODONE HYDROCHLORIDE [Suspect]
     Active Substance: ACETAMINOPHEN\OXYCODONE HYDROCHLORIDE
  2. OXYCONTIN [Suspect]
     Active Substance: OXYCODONE HYDROCHLORIDE
  3. FENTANYL [Suspect]
     Active Substance: FENTANYL\FENTANYL CITRATE
  4. FENTANYL CITRATE [Suspect]
     Active Substance: FENTANYL CITRATE
  5. OXYCODONE [Suspect]
     Active Substance: OXYCODONE

REACTIONS (1)
  - Dependence [Unknown]
